FAERS Safety Report 18439118 (Version 7)
Quarter: 2021Q1

REPORT INFORMATION
  Report Type: Report from Study
  Country: PL (occurrence: PL)
  Receive Date: 20201028
  Receipt Date: 20210225
  Transmission Date: 20210419
  Serious: Yes (Hospitalization)
  Sender: FDA-Public Use
  Company Number: PL-EXELIXIS-XL18420032763

PATIENT
  Age: 70 Year
  Sex: Male
  Weight: 57 kg

DRUGS (34)
  1. DROTAVERIN [Concomitant]
     Active Substance: DROTAVERINE
  2. TRAMADOL. [Concomitant]
     Active Substance: TRAMADOL
  3. SULFA [Concomitant]
     Active Substance: UNSPECIFIED INGREDIENT
  4. NONPRES [Concomitant]
     Active Substance: EPLERENONE
  5. BUSCOLYSIN [Concomitant]
     Active Substance: BUTYLSCOPOLAMINE
  6. PARACETAMOL [Concomitant]
     Active Substance: ACETAMINOPHEN
  7. XL184 [Suspect]
     Active Substance: CABOZANTINIB
     Indication: HEPATOCELLULAR CARCINOMA
     Dosage: 40 MG, QD
     Route: 048
     Dates: start: 20191025, end: 20200913
  8. XL184 [Suspect]
     Active Substance: CABOZANTINIB
     Dosage: 40 MG, QD
     Route: 048
     Dates: start: 20200824, end: 20200913
  9. ENCORTON [Concomitant]
     Active Substance: PREDNISONE
  10. CAVINTON [Concomitant]
     Active Substance: VINPOCETINE
  11. RYTMONORM [Concomitant]
     Active Substance: PROPAFENONE
  12. MAGNE B6 [Concomitant]
     Active Substance: MAGNESIUM\PYRIDOXINE
  13. OXYCODONE [Concomitant]
     Active Substance: OXYCODONE
  14. FENTANYL. [Concomitant]
     Active Substance: FENTANYL
  15. POLPRAZOL [Concomitant]
     Active Substance: OMEPRAZOLE
  16. JANUVIA [Concomitant]
     Active Substance: SITAGLIPTIN PHOSPHATE
  17. EUTHYROX [Concomitant]
     Active Substance: LEVOTHYROXINE SODIUM
  18. KETOPROFEN. [Concomitant]
     Active Substance: KETOPROFEN
  19. FLUCONAZOLE. [Concomitant]
     Active Substance: FLUCONAZOLE
  20. BISEPTOL [Concomitant]
     Active Substance: SULFAMETHOXAZOLE\TRIMETHOPRIM
  21. METFORMAX [Concomitant]
     Active Substance: METFORMIN HYDROCHLORIDE
  22. METRONIDAZOLE. [Concomitant]
     Active Substance: METRONIDAZOLE
  23. AMARIN [Concomitant]
  24. FRAGMIN [Concomitant]
     Active Substance: DALTEPARIN SODIUM
  25. LIGNOCAINE [Concomitant]
     Active Substance: LIDOCAINE HYDROCHLORIDE
  26. ATEZOLIZUMAB. [Suspect]
     Active Substance: ATEZOLIZUMAB
     Indication: HEPATOCELLULAR CARCINOMA
     Dosage: 1200 MG, Q3WEEKS
     Route: 042
     Dates: start: 20191025, end: 20200609
  27. MIDANIUM [Concomitant]
     Active Substance: MIDAZOLAM HYDROCHLORIDE
  28. ACARD [ACETYLSALICYLIC ACID] [Concomitant]
     Active Substance: ASPIRIN
  29. DEXAMETHASONE. [Concomitant]
     Active Substance: DEXAMETHASONE
  30. OMEPRAZOLE GENOPTIM [Concomitant]
  31. PREGABALIN. [Concomitant]
     Active Substance: PREGABALIN
  32. PROPOFOL. [Concomitant]
     Active Substance: PROPOFOL
  33. CONCOR COR [Concomitant]
     Active Substance: BISOPROLOL FUMARATE
  34. METAMIZOLE [Concomitant]
     Active Substance: METAMIZOLE

REACTIONS (7)
  - Jaundice cholestatic [Recovered/Resolved]
  - Renal failure [Recovered/Resolved]
  - Urosepsis [Recovered/Resolved]
  - Infection [Recovered/Resolved]
  - Intervertebral disc protrusion [Recovered/Resolved]
  - Biliary tract infection [Recovered/Resolved]
  - Enterococcal sepsis [Recovered/Resolved]

NARRATIVE: CASE EVENT DATE: 20200813
